FAERS Safety Report 7413805-X (Version None)
Quarter: 2011Q2

REPORT INFORMATION
  Report Type: 
  Country: None (occurrence: None)
  Receive Date: 20110413
  Receipt Date: 20110405
  Transmission Date: 20111010
  Serious: Yes (Hospitalization, Disabling)
  Sender: FDA-Public Use
  Company Number: US-MERCK-1012USA01882

PATIENT
  Age: 66 Year
  Sex: Female

DRUGS (4)
  1. CENTRUM SILVER [Concomitant]
     Route: 048
  2. FOSAMAX [Suspect]
     Indication: OSTEOPENIA
     Route: 048
     Dates: start: 19990101, end: 20060604
  3. CENTRUM [Concomitant]
     Route: 048
  4. FOSAMAX [Suspect]
     Indication: OSTEOPOROSIS PROPHYLAXIS
     Route: 048
     Dates: start: 19990101, end: 20060604

REACTIONS (12)
  - OSTEOPOROSIS [None]
  - FEMUR FRACTURE [None]
  - FALL [None]
  - GINGIVAL DISORDER [None]
  - HAEMATOCRIT DECREASED [None]
  - HYPERCHOLESTEROLAEMIA [None]
  - HYPERTENSION [None]
  - HYPERLIPIDAEMIA [None]
  - SINUS DISORDER [None]
  - HAEMOGLOBIN DECREASED [None]
  - LOW TURNOVER OSTEOPATHY [None]
  - STRESS FRACTURE [None]
